FAERS Safety Report 10494596 (Version 1)
Quarter: 2014Q4

REPORT INFORMATION
  Report Type: Spontaneous
  Country: PL (occurrence: None)
  Receive Date: 20141001
  Receipt Date: 20141001
  Transmission Date: 20150528
  Serious: Yes (Other)
  Sender: FDA-Public Use
  Company Number: 2014SCAL000126

PATIENT
  Age: 26 Year
  Sex: Female

DRUGS (6)
  1. THEOPHYLLINE EXTENDED RELEASE [Suspect]
     Active Substance: THEOPHYLLINE ANHYDROUS
     Indication: BRADYCARDIA
  2. METOCLOPRAMIDE (METOCLOPRAMIDE) [Suspect]
     Active Substance: METOCLOPRAMIDE
     Indication: VOMITING
     Route: 051
  3. TACROLIMUS (TACROLIMUS) [Concomitant]
     Active Substance: TACROLIMUS
  4. METOCLOPRAMIDE (METOCLOPRAMIDE) [Suspect]
     Active Substance: METOCLOPRAMIDE
     Indication: DYSPEPSIA
     Route: 051
  5. METOCLOPRAMIDE (METOCLOPRAMIDE) [Suspect]
     Active Substance: METOCLOPRAMIDE
     Indication: CONSTIPATION
     Route: 051
  6. METOCLOPRAMIDE (METOCLOPRAMIDE) [Suspect]
     Active Substance: METOCLOPRAMIDE
     Indication: NAUSEA
     Route: 051

REACTIONS (4)
  - Overdose [None]
  - Maternal exposure during pregnancy [None]
  - Generalised tonic-clonic seizure [None]
  - Drug interaction [None]
